FAERS Safety Report 8008818-3 (Version None)
Quarter: 2011Q4

REPORT INFORMATION
  Report Type: 
  Country: None (occurrence: None)
  Receive Date: 20111221
  Receipt Date: 20111215
  Transmission Date: 20120403
  Serious: Yes (Death, Hospitalization)
  Sender: FDA-Public Use
  Company Number: 2011NUEUSA00057

PATIENT
  Age: 89 Year
  Sex: Female

DRUGS (1)
  1. NUEDEXTA [Suspect]
     Indication: PRODUCT USED FOR UNKNOWN INDICATION
     Dates: start: 20111110

REACTIONS (1)
  - MYOCARDIAL INFARCTION [None]
